FAERS Safety Report 8906448 (Version 1)
Quarter: 2012Q4

REPORT INFORMATION
  Report Type: Spontaneous
  Country: GB (occurrence: None)
  Receive Date: 20121107
  Receipt Date: 20121107
  Transmission Date: 20130627
  Serious: Yes (Other)
  Sender: FDA-Public Use
  Company Number: 2012-01596

PATIENT
  Age: 72 Year
  Sex: Male
  Weight: 89 kg

DRUGS (10)
  1. SIMVASTATIN (SIMVASTATIN) [Suspect]
     Indication: CHOLESTEROL HIGH
     Route: 048
  2. SIMVASTATIN (SIMVASTATIN) [Suspect]
     Indication: TRANSIENT ISCHAEMIC ATTACK
     Route: 048
  3. SIMVASTATIN (SIMVASTATIN) [Suspect]
     Indication: CHOLESTEROL HIGH
     Route: 048
     Dates: start: 20120904
  4. SIMVASTATIN (SIMVASTATIN) [Suspect]
     Indication: TRANSIENT ISCHAEMIC ATTACK
     Route: 048
     Dates: start: 20120904
  5. ASPIRIN [Concomitant]
  6. CETIRIZINE [Concomitant]
  7. FRUSEMIDE (FUROSEMIDE) [Concomitant]
  8. PARACETAMOL [Concomitant]
  9. RAMIPRIL (RAMIPRIL) [Concomitant]
  10. TRAMADOL [Concomitant]

REACTIONS (1)
  - Increased upper airway secretion [None]
